FAERS Safety Report 14609299 (Version 3)
Quarter: 2018Q1

REPORT INFORMATION
  Report Type: Spontaneous
  Country: JP (occurrence: JP)
  Receive Date: 20180307
  Receipt Date: 20180319
  Transmission Date: 20180509
  Serious: Yes (Other)
  Sender: FDA-Public Use
  Company Number: PHJP2018JP005289

PATIENT
  Sex: Female

DRUGS (1)
  1. DUOTRAV COMBINATION OPHTHALMIC SOLUTION [Suspect]
     Active Substance: TIMOLOL MALEATE\TRAVOPROST
     Indication: GLAUCOMA
     Dosage: 1 GTT, QD
     Route: 047

REACTIONS (3)
  - Eyelid ptosis [Unknown]
  - Prostaglandin analogue periorbitopathy [Unknown]
  - Ocular myasthenia [Unknown]
